FAERS Safety Report 8529987-2 (Version None)
Quarter: 2012Q3

REPORT INFORMATION
  Report Type: 
  Country: None (occurrence: None)
  Receive Date: 20120723
  Receipt Date: 20111004
  Transmission Date: 20120928
  Serious: No
  Sender: FDA-Public Use
  Company Number: US-GLAXOSMITHKLINE-A0947003A

PATIENT
  Sex: Female

DRUGS (1)
  1. DYAZIDE [Suspect]

REACTIONS (2)
  - GASTROINTESTINAL DISORDER [None]
  - RASH [None]
